FAERS Safety Report 21624588 (Version 2)
Quarter: 2023Q2

REPORT INFORMATION
  Report Type: Report from Study
  Country: US (occurrence: US)
  Receive Date: 20221121
  Receipt Date: 20230407
  Transmission Date: 20230721
  Serious: No
  Sender: FDA-Public Use
  Company Number: US-ABBVIE-4207053

PATIENT
  Sex: Female

DRUGS (1)
  1. IMBRUVICA [Suspect]
     Active Substance: IBRUTINIB
     Indication: Chronic lymphocytic leukaemia
     Route: 048
     Dates: start: 20210415

REACTIONS (9)
  - Skin burning sensation [Unknown]
  - Rash papular [Unknown]
  - Pain [Unknown]
  - Insomnia [Unknown]
  - Contusion [Unknown]
  - Blister infected [Unknown]
  - Skin ulcer [Unknown]
  - Scar [Unknown]
  - Rash pruritic [Unknown]
